FAERS Safety Report 6909311-9 (Version None)
Quarter: 2010Q3

REPORT INFORMATION
  Report Type: 
  Country: None (occurrence: None)
  Receive Date: 20100805
  Receipt Date: 20100728
  Transmission Date: 20110219
  Serious: Yes (Hospitalization)
  Sender: FDA-Public Use
  Company Number: PHHO2010DE10477

PATIENT
  Sex: Female
  Weight: 96 kg

DRUGS (5)
  1. CERTICAN [Suspect]
     Indication: RENAL TRANSPLANT
     Dosage: UNK
     Route: 048
     Dates: start: 20100113
  2. SIMULECT [Suspect]
     Indication: RENAL TRANSPLANT
     Dosage: UNK
     Dates: start: 20100113
  3. SIMULECT [Suspect]
     Dosage: UNK
     Dates: start: 20100117
  4. MYFORTIC [Suspect]
     Dosage: UNK
     Dates: start: 20100113, end: 20100412
  5. SANDIMMUNE [Suspect]
     Dosage: UNK
     Dates: start: 20100117

REACTIONS (1)
  - CARBOHYDRATE ANTIGEN 125 INCREASED [None]
